FAERS Safety Report 21466059 (Version 3)
Quarter: 2023Q1

REPORT INFORMATION
  Report Type: Report from Study
  Country: US (occurrence: US)
  Receive Date: 20221017
  Receipt Date: 20230112
  Transmission Date: 20230417
  Serious: No
  Sender: FDA-Public Use
  Company Number: US-ABBVIE-4142598

PATIENT
  Sex: Female

DRUGS (2)
  1. RINVOQ [Suspect]
     Active Substance: UPADACITINIB
     Indication: Rheumatoid arthritis
     Route: 048
     Dates: start: 20220715
  2. RINVOQ [Suspect]
     Active Substance: UPADACITINIB
     Indication: Rheumatoid arthritis
     Dosage: EXTENDED RELEASE 15 MG ER TAB?FREQUENCY TEXT: EACH DAY
     Route: 048

REACTIONS (4)
  - COVID-19 [Recovered/Resolved]
  - Upper respiratory tract infection [Recovered/Resolved]
  - Therapeutic product effect decreased [Unknown]
  - Rheumatoid arthritis [Unknown]
